FAERS Safety Report 15588319 (Version 1)
Quarter: 2018Q4

REPORT INFORMATION
  Report Type: Report from Study
  Country: CA (occurrence: CA)
  Receive Date: 20181105
  Receipt Date: 20181105
  Transmission Date: 20190205
  Serious: Yes (Other)
  Sender: FDA-Public Use
  Company Number: CA-APOPHARMA-2018AP023777

PATIENT
  Sex: Female
  Weight: 48 kg

DRUGS (1)
  1. FERRIPROX [Suspect]
     Active Substance: DEFERIPRONE
     Indication: THALASSAEMIA
     Dosage: 75 MG/KG, QD
     Route: 048
     Dates: start: 20141201

REACTIONS (1)
  - Sepsis [Unknown]
